FAERS Safety Report 17693216 (Version 1)
Quarter: 2020Q2

REPORT INFORMATION
  Report Type: Spontaneous
  Country: US (occurrence: US)
  Receive Date: 20200421
  Receipt Date: 20200421
  Transmission Date: 20200714
  Serious: Yes (Hospitalization, Other)
  Sender: FDA-Public Use
  Company Number: None

PATIENT
  Age: 52 Year
  Sex: Female

DRUGS (24)
  1. ZONISAMIDE. [Concomitant]
     Active Substance: ZONISAMIDE
  2. ATORVASTATIN [Concomitant]
     Active Substance: ATORVASTATIN
  3. HUMIRA [Suspect]
     Active Substance: ADALIMUMAB
     Indication: RHEUMATOID ARTHRITIS
     Dosage: ?          OTHER DOSE:1 PEN (40MG/0.8ML);?
     Route: 058
     Dates: start: 20191018
  4. CARISOPRODOL. [Concomitant]
     Active Substance: CARISOPRODOL
  5. CIPROFLOXACIN. [Concomitant]
     Active Substance: CIPROFLOXACIN
  6. HYDROCO/APAP [Concomitant]
     Active Substance: ACETAMINOPHEN\HYDROCODONE
  7. CELECOXIB. [Concomitant]
     Active Substance: CELECOXIB
  8. LOSARTAN POT [Concomitant]
     Active Substance: LOSARTAN POTASSIUM
  9. SOLIFENACIN [Concomitant]
     Active Substance: SOLIFENACIN
  10. ONDANSETRON [Concomitant]
     Active Substance: ONDANSETRON
  11. HYDROCHLOROT [Concomitant]
     Active Substance: HYDROCHLOROTHIAZIDE
  12. AIMOVIG [Concomitant]
     Active Substance: ERENUMAB-AOOE
  13. POT CHLORIDE [Concomitant]
     Active Substance: POTASSIUM CHLORIDE
  14. POT CL MICRO [Concomitant]
  15. TIZANIDINE. [Concomitant]
     Active Substance: TIZANIDINE
  16. CEPHALEXIN. [Concomitant]
     Active Substance: CEPHALEXIN
  17. NITROFURANTIN [Concomitant]
     Active Substance: NITROFURANTOIN
  18. AMITRIPTYLIN [Concomitant]
     Active Substance: AMITRIPTYLINE
  19. ERYTHROMYCIN OIN [Concomitant]
  20. GABAPENTIN. [Concomitant]
     Active Substance: GABAPENTIN
  21. METOPROLOL SUC [Concomitant]
  22. TAMSULOSIN [Concomitant]
     Active Substance: TAMSULOSIN
  23. ELETRIPTAN. [Concomitant]
     Active Substance: ELETRIPTAN
  24. LEFLUNOMIDE. [Concomitant]
     Active Substance: LEFLUNOMIDE

REACTIONS (1)
  - Cardiac pacemaker insertion [None]

NARRATIVE: CASE EVENT DATE: 20200407
